FAERS Safety Report 21739777 (Version 1)
Quarter: 2022Q4

REPORT INFORMATION
  Report Type: Spontaneous
  Country: FR (occurrence: FR)
  Receive Date: 20221216
  Receipt Date: 20221216
  Transmission Date: 20230113
  Serious: Yes (Disabling)
  Sender: FDA-Public Use
  Company Number: None

PATIENT

DRUGS (1)
  1. LAMICTAL [Suspect]
     Active Substance: LAMOTRIGINE
     Indication: Bipolar disorder
     Dosage: UNK (SEE COMMENTS)
     Route: 048
     Dates: start: 20220501, end: 20220930

REACTIONS (3)
  - Urinary tract infection [Recovered/Resolved with Sequelae]
  - Vaginal infection [Recovered/Resolved with Sequelae]
  - Mucosal disorder [Recovered/Resolved with Sequelae]

NARRATIVE: CASE EVENT DATE: 20220510
